FAERS Safety Report 9737247 (Version 1)
Quarter: 2013Q4

REPORT INFORMATION
  Report Type: Spontaneous
  Country: US (occurrence: US)
  Receive Date: 20131206
  Receipt Date: 20131206
  Transmission Date: 20140711
  Serious: No
  Sender: FDA-Public Use
  Company Number: US-PFIZER INC-2013350025

PATIENT
  Sex: Male

DRUGS (5)
  1. EFFEXOR XR [Suspect]
     Indication: DEPRESSION
     Dosage: 150 MG, 1X/DAY
     Route: 048
     Dates: end: 2013
  2. EFFEXOR XR [Suspect]
     Indication: ANXIETY
     Dosage: 37.5 MG, UNK
     Route: 048
     Dates: start: 2013, end: 2013
  3. EFFEXOR XR [Suspect]
     Indication: SOCIAL PHOBIA
  4. ADVIL [Concomitant]
     Dosage: UNK
  5. ADDERALL [Concomitant]
     Dosage: 40 MG, 1X/DAY

REACTIONS (4)
  - Drug withdrawal syndrome [Unknown]
  - Nausea [Unknown]
  - Headache [Unknown]
  - Vertigo [Unknown]
